FAERS Safety Report 6690688-7 (Version None)
Quarter: 2010Q2

REPORT INFORMATION
  Report Type: 
  Country: None (occurrence: None)
  Receive Date: 20100420
  Receipt Date: 20100420
  Transmission Date: 20101027
  Serious: Yes (Hospitalization)
  Sender: FDA-Public Use
  Company Number: None

PATIENT
  Age: 61 Year
  Sex: Male
  Weight: 89.8 kg

DRUGS (1)
  1. DOXEPIN HCL [Suspect]
     Indication: DEPRESSION
     Dosage: 50 MG HS PO
     Route: 048
     Dates: start: 20090430, end: 20100415

REACTIONS (1)
  - HYPONATRAEMIA [None]
